FAERS Safety Report 9395145 (Version 2)
Quarter: 2013Q3

REPORT INFORMATION
  Report Type: Spontaneous
  Country: FR (occurrence: FR)
  Receive Date: 20130711
  Receipt Date: 20130711
  Transmission Date: 20140515
  Serious: Yes (Hospitalization)
  Sender: FDA-Public Use
  Company Number: FR-TEVA-408184ISR

PATIENT
  Age: 66 Year
  Sex: Male

DRUGS (8)
  1. FUROSEMIDE [Suspect]
     Indication: DIALYSIS
     Dosage: 2 DOSAGE FORMS DAILY; DELIVERED ON 24-FEB-2013
  2. MIMPARA [Concomitant]
     Dosage: 1 DOSAGE FORMS DAILY;
  3. KARDEGIC [Concomitant]
     Dosage: 1 DOSAGE FORMS DAILY;
  4. ESOMEPRAZOLE [Concomitant]
     Dosage: 2 DOSAGE FORMS DAILY;
  5. BROMAZEPAM [Concomitant]
     Dosage: 1 DOSAGE FORMS DAILY;
  6. RAMIPRIL [Concomitant]
     Dosage: 1 DOSAGE FORMS DAILY; RAMIPRIL 2.5
  7. CALCIDIA 1000/540 [Concomitant]
     Dosage: 1 DOSAGE FORMS DAILY;
  8. UNALPHA 0.25 [Concomitant]
     Indication: DIALYSIS
     Dosage: 1 DOSAGE FORMS DAILY; UNALPHA 0.25

REACTIONS (2)
  - Abdominal pain upper [Recovered/Resolved]
  - Haematochezia [Recovered/Resolved]
